FAERS Safety Report 7641432-8 (Version None)
Quarter: 2011Q3

REPORT INFORMATION
  Report Type: 
  Country: None (occurrence: None)
  Receive Date: 20110728
  Receipt Date: 20110715
  Transmission Date: 20111222
  Serious: Yes (Other)
  Sender: FDA-Public Use
  Company Number: US-CELGENEUS-163-21880-10070683

PATIENT

DRUGS (4)
  1. REVLIMID [Suspect]
     Indication: MULTIPLE MYELOMA
     Dosage: 10-25MG
     Route: 048
  2. DEXAMETHASONE [Suspect]
     Dosage: 40 MILLIGRAM
     Route: 048
  3. DEXAMETHASONE [Suspect]
     Indication: MULTIPLE MYELOMA
     Dosage: 40 MILLIGRAM
     Route: 048
  4. CARFILZOMIB [Suspect]
     Indication: MULTIPLE MYELOMA
     Dosage: 15-27MG/M2
     Route: 041

REACTIONS (34)
  - HYPERGLYCAEMIA [None]
  - THROMBOCYTOPENIA [None]
  - NAUSEA [None]
  - FEBRILE NEUTROPENIA [None]
  - HYPOPHOSPHATAEMIA [None]
  - FATIGUE [None]
  - RENAL FAILURE ACUTE [None]
  - PYREXIA [None]
  - INFLUENZA [None]
  - URINARY TRACT INFECTION [None]
  - MYOCARDIAL INFARCTION [None]
  - PANCYTOPENIA [None]
  - ANGINA PECTORIS [None]
  - ANAEMIA [None]
  - NEUTROPENIA [None]
  - HEADACHE [None]
  - RASH [None]
  - HYPONATRAEMIA [None]
  - UPPER RESPIRATORY TRACT INFECTION [None]
  - HYPOXIA [None]
  - PNEUMONIA [None]
  - LYMPHOPENIA [None]
  - CEREBROVASCULAR ACCIDENT [None]
  - OEDEMA PERIPHERAL [None]
  - EPISTAXIS [None]
  - SINUS BRADYCARDIA [None]
  - DIARRHOEA [None]
  - GASTROINTESTINAL HAEMORRHAGE [None]
  - FACE OEDEMA [None]
  - HYPERCALCAEMIA [None]
  - PERIPHERAL SENSORY NEUROPATHY [None]
  - COUGH [None]
  - ASTHENIA [None]
  - PERIPHERAL MOTOR NEUROPATHY [None]
